FAERS Safety Report 17978394 (Version 4)
Quarter: 2020Q4

REPORT INFORMATION
  Report Type: Report from Study
  Country: FR (occurrence: FR)
  Receive Date: 20200703
  Receipt Date: 20201031
  Transmission Date: 20210113
  Serious: Yes (Hospitalization, Other)
  Sender: FDA-Public Use
  Company Number: FR-ROCHE-2631658

PATIENT
  Age: 49 Year
  Sex: Female
  Weight: 62 kg

DRUGS (6)
  1. MORPHINE [Concomitant]
     Active Substance: MORPHINE
     Route: 042
     Dates: start: 20200331
  2. ATEZOLIZUMAB. [Suspect]
     Active Substance: ATEZOLIZUMAB
     Indication: CERVIX CARCINOMA
     Dosage: ON 17/MAR/2020, RECEIVED MOST RECENT DOSE PRIOR TO EVENT (ABDOMINAL PAIN LOWER AND PELVICALIECTASIS)
     Route: 041
     Dates: start: 20200225
  3. SPASFON [Concomitant]
     Route: 048
     Dates: start: 20200331
  4. PARACETAMOL [Concomitant]
     Active Substance: ACETAMINOPHEN
     Route: 048
     Dates: start: 20200331
  5. MOVICOL [Concomitant]
     Active Substance: POLYETHYLENE GLYCOL 3350\POTASSIUM CHLORIDE\SODIUM BICARBONATE\SODIUM CHLORIDE
     Dates: start: 20200331
  6. ACTISKENAN [Concomitant]
     Active Substance: MORPHINE SULFATE
     Route: 048
     Dates: start: 20200331

REACTIONS (5)
  - Malignant gastrointestinal obstruction [Recovered/Resolved with Sequelae]
  - Abdominal pain lower [Recovered/Resolved]
  - Vaccination site haematoma [Recovered/Resolved]
  - Acute kidney injury [Recovered/Resolved with Sequelae]
  - Pyelocaliectasis [Recovered/Resolved]

NARRATIVE: CASE EVENT DATE: 20200313
